FAERS Safety Report 5406635-1 (Version None)
Quarter: 2007Q3

REPORT INFORMATION
  Report Type: 
  Country: None (occurrence: None)
  Receive Date: 20070806
  Receipt Date: 20070726
  Transmission Date: 20080115
  Serious: Yes (Other)
  Sender: FDA-Public Use
  Company Number: US-PFIZER INC-2007063015

PATIENT
  Sex: Female

DRUGS (2)
  1. REVATIO [Suspect]
     Route: 065
  2. ORGANIC NITRATES [Concomitant]

REACTIONS (1)
  - HYPOTENSION [None]
